FAERS Safety Report 17370286 (Version 1)
Quarter: 2020Q1

REPORT INFORMATION
  Report Type: Report from Study
  Country: GB (occurrence: GB)
  Receive Date: 20200205
  Receipt Date: 20200205
  Transmission Date: 20200409
  Serious: Yes (Hospitalization)
  Sender: FDA-Public Use
  Company Number: GB-TEVA-2020-GB-1181045

PATIENT
  Age: 45 Year
  Sex: Female

DRUGS (22)
  1. HERCEPTIN [Suspect]
     Active Substance: TRASTUZUMAB
     Dosage: MAINTENANCE DOSE (6 MG/KG)
     Route: 042
     Dates: start: 20160406
  2. PERTUZUMAB. [Suspect]
     Active Substance: PERTUZUMAB
     Dosage: 420 MG
     Route: 042
     Dates: start: 20160406
  3. ADCAL-D3 [Concomitant]
     Active Substance: CALCIUM CARBONATE\CHOLECALCIFEROL
     Indication: PROPHYLAXIS
     Dosage: 1 DOSAGE FORMS
     Route: 048
     Dates: start: 20160317
  4. PARACETAMOL [Concomitant]
     Active Substance: ACETAMINOPHEN
     Indication: BONE PAIN
     Dosage: 1 G
     Route: 048
  5. CYCLIZINE [Concomitant]
     Active Substance: CYCLIZINE
     Dosage: 50 MG
     Route: 048
  6. DEXAMETHASONE. [Concomitant]
     Active Substance: DEXAMETHASONE
     Dosage: 1 MG
     Route: 048
     Dates: start: 20160416
  7. FILGRASTIM [Concomitant]
     Active Substance: FILGRASTIM
     Dosage: 300 MG
     Route: 058
     Dates: start: 20160317, end: 20160321
  8. NEFOPAM [Concomitant]
     Active Substance: NEFOPAM
     Dosage: 30 MG
     Route: 048
     Dates: start: 20160907
  9. DICLOFENAC [Concomitant]
     Active Substance: DICLOFENAC
     Indication: BONE PAIN
     Dosage: 75 MG
     Route: 048
  10. DEXAMETHASONE. [Concomitant]
     Active Substance: DEXAMETHASONE
     Dosage: 8 MG
     Route: 048
     Dates: start: 20160407
  11. DOCETAXEL. [Suspect]
     Active Substance: DOCETAXEL
     Indication: BREAST CANCER METASTATIC
     Dosage: 140 MG
     Route: 042
     Dates: start: 20160316
  12. DEXAMETHASONE. [Concomitant]
     Active Substance: DEXAMETHASONE
     Indication: PROPHYLAXIS
     Dosage: 8 MG
     Route: 048
     Dates: start: 20160317, end: 20160320
  13. HERCEPTIN [Suspect]
     Active Substance: TRASTUZUMAB
     Dosage: 577.5 MG
     Route: 042
     Dates: start: 20160317, end: 20160317
  14. FILGRASTIM [Concomitant]
     Active Substance: FILGRASTIM
     Dosage: 300 MG
     Route: 058
     Dates: start: 20160407
  15. METOCLOPRAMIDE. [Concomitant]
     Active Substance: METOCLOPRAMIDE
     Indication: PROPHYLAXIS
     Dosage: 10 MG
     Route: 042
     Dates: start: 20160316, end: 20160316
  16. ZOLEDRONIC ACID [Concomitant]
     Active Substance: ZOLEDRONIC ACID
     Dosage: 4 MG
     Route: 042
     Dates: start: 20160317
  17. COCODAMOL [Concomitant]
     Active Substance: ACETAMINOPHEN\CODEINE PHOSPHATE
     Indication: BONE PAIN
     Dosage: 30 MG
     Route: 048
  18. PERTUZUMAB. [Suspect]
     Active Substance: PERTUZUMAB
     Indication: BREAST CANCER METASTATIC
     Dosage: LOADING DOSE
     Route: 042
     Dates: start: 20160317, end: 20160317
  19. DESUNIN [Concomitant]
     Active Substance: CHOLECALCIFEROL
     Dosage: 800 IU
     Route: 048
     Dates: start: 20160330
  20. DERMOL [Concomitant]
     Active Substance: BENZALKONIUM CHLORIDE\CHLORHEXIDINE HYDROCHLORIDE\ISOPROPYL MYRISTATE\PARAFFIN
     Indication: DERMATITIS
     Route: 061
     Dates: start: 20160330
  21. CYCLIZINE [Concomitant]
     Active Substance: CYCLIZINE
     Dosage: 50 MG
     Route: 042
     Dates: start: 20160406, end: 20160406
  22. DENOSUMAB [Concomitant]
     Active Substance: DENOSUMAB
     Dosage: 120 MG
     Route: 042
     Dates: start: 20160727

REACTIONS (8)
  - Sepsis [Recovered/Resolved]
  - Vomiting [Recovered/Resolved]
  - Nasal discomfort [Not Recovered/Not Resolved]
  - Diarrhoea [Recovered/Resolved]
  - Acute kidney injury [Recovered/Resolved]
  - Mouth ulceration [Recovering/Resolving]
  - Naevus haemorrhage [Unknown]
  - Urinary tract infection [Recovered/Resolved]

NARRATIVE: CASE EVENT DATE: 20160330
